FAERS Safety Report 8548335-5 (Version None)
Quarter: 2012Q3

REPORT INFORMATION
  Report Type: 
  Country: None (occurrence: None)
  Receive Date: 20120730
  Receipt Date: 20120720
  Transmission Date: 20120928
  Serious: Yes (Other)
  Sender: FDA-Public Use
  Company Number: GB-JNJFOC-20120712635

PATIENT
  Age: 74 Year
  Sex: Female

DRUGS (3)
  1. PALIPERIDONE [Suspect]
     Indication: PRODUCT USED FOR UNKNOWN INDICATION
     Route: 030
  2. PALIPERIDONE [Suspect]
     Route: 030
  3. PALIPERIDONE [Suspect]
     Route: 030
     Dates: start: 20120401

REACTIONS (2)
  - CARDIOVASCULAR DISORDER [None]
  - SYNCOPE [None]
